FAERS Safety Report 16281125 (Version 1)
Quarter: 2019Q2

REPORT INFORMATION
  Report Type: Spontaneous
  Country: SE (occurrence: SE)
  Receive Date: 20190507
  Receipt Date: 20190507
  Transmission Date: 20190711
  Serious: Yes (Other)
  Sender: FDA-Public Use
  Company Number: PHHY2019SE101411

PATIENT
  Age: 23 Year
  Sex: Female

DRUGS (1)
  1. LAMOTRIGIN 1A PHARMA [Suspect]
     Active Substance: LAMOTRIGINE
     Indication: BORDERLINE PERSONALITY DISORDER
     Dosage: UNK
     Route: 065
     Dates: end: 20181225

REACTIONS (11)
  - Amnesia [Unknown]
  - Headache [Unknown]
  - Myalgia [Unknown]
  - Cold sweat [Unknown]
  - Urticaria [Unknown]
  - Syncope [Unknown]
  - Pyrexia [Unknown]
  - Loss of consciousness [Unknown]
  - Dizziness [Unknown]
  - Abdominal pain upper [Unknown]
  - Haematemesis [Unknown]

NARRATIVE: CASE EVENT DATE: 20181219
